FAERS Safety Report 7722203-0 (Version None)
Quarter: 2011Q3

REPORT INFORMATION
  Report Type: 
  Country: None (occurrence: None)
  Receive Date: 20110831
  Receipt Date: 20110825
  Transmission Date: 20111222
  Serious: Yes (Other)
  Sender: FDA-Public Use
  Company Number: US-JNJFOC-20110811693

PATIENT
  Sex: Female
  Weight: 83.92 kg

DRUGS (6)
  1. REMICADE [Suspect]
     Indication: RHEUMATOID ARTHRITIS
     Route: 042
     Dates: start: 20110623
  2. VITAMIN A [Concomitant]
     Indication: NUTRITIONAL SUPPORT
     Route: 048
  3. ACID REFLUX MEDICATION [Concomitant]
     Indication: GASTROOESOPHAGEAL REFLUX DISEASE
     Route: 048
  4. BLOOD PRESSURE MEDICATION NOS [Concomitant]
     Indication: BLOOD PRESSURE
     Route: 048
  5. METHOTREXATE [Concomitant]
     Indication: RHEUMATOID ARTHRITIS
     Dosage: 20MG/TABLET/2.5MG/WEEKLY
     Route: 048
  6. WATER PILL NOS [Concomitant]
     Route: 048

REACTIONS (5)
  - MUSCULOSKELETAL STIFFNESS [None]
  - ARTHRALGIA [None]
  - WEIGHT INCREASED [None]
  - PARAESTHESIA [None]
  - DRUG INEFFECTIVE [None]
